FAERS Safety Report 18665382 (Version 1)
Quarter: 2020Q4

REPORT INFORMATION
  Report Type: Spontaneous
  Country: BE (occurrence: BE)
  Receive Date: 20201225
  Receipt Date: 20201225
  Transmission Date: 20210114
  Serious: Yes (Other)
  Sender: FDA-Public Use
  Company Number: NVSC2020BE337504

PATIENT
  Age: 85 Year

DRUGS (4)
  1. SIFROL [Concomitant]
     Active Substance: PRAMIPEXOLE
     Indication: RESTLESS LEGS SYNDROME
     Dosage: UNK (DISCONTINUED)
     Route: 065
  2. ENTRESTO [Suspect]
     Active Substance: SACUBITRIL\VALSARTAN
     Indication: PRODUCT USED FOR UNKNOWN INDICATION
     Dosage: 50 MG, BID (24MG/26MG)
     Route: 065
     Dates: start: 20200108
  3. SIFROL [Concomitant]
     Active Substance: PRAMIPEXOLE
     Dosage: UNK
     Route: 065
  4. ENTRESTO [Suspect]
     Active Substance: SACUBITRIL\VALSARTAN
     Dosage: UNK (EVENING DOSE WAS INCREASED TO 49MG/51MG)
     Route: 065
     Dates: start: 20200129

REACTIONS (8)
  - Feeling abnormal [Unknown]
  - Ataxia [Unknown]
  - Akathisia [Unknown]
  - Muscle atrophy [Unknown]
  - Blood pressure abnormal [Unknown]
  - General physical health deterioration [Unknown]
  - Weight decreased [Unknown]
  - Diarrhoea [Recovering/Resolving]

NARRATIVE: CASE EVENT DATE: 20200212
